FAERS Safety Report 5828060-1 (Version None)
Quarter: 2008Q3

REPORT INFORMATION
  Report Type: 
  Country: None (occurrence: None)
  Receive Date: 20080730
  Receipt Date: 20080317
  Transmission Date: 20090109
  Serious: No
  Sender: FDA-Public Use
  Company Number: A0715809A

PATIENT
  Age: 40 Year
  Sex: Male

DRUGS (1)
  1. ZANTAC [Suspect]
     Indication: ULCER
     Route: 048
     Dates: start: 19890101, end: 19900101

REACTIONS (1)
  - GYNAECOMASTIA [None]
